FAERS Safety Report 7580403-7 (Version None)
Quarter: 2011Q2

REPORT INFORMATION
  Report Type: 
  Country: None (occurrence: None)
  Receive Date: 20110629
  Receipt Date: 20110617
  Transmission Date: 20111010
  Serious: Yes (Other)
  Sender: FDA-Public Use
  Company Number: DE-ROCHE-786246

PATIENT
  Sex: Male
  Weight: 94 kg

DRUGS (2)
  1. RIBAVIRIN [Suspect]
     Route: 048
  2. PEGINTERFERON ALFA-2A [Suspect]
     Route: 058
     Dates: start: 20090123, end: 20090504

REACTIONS (1)
  - TUBERCULOSIS [None]
